FAERS Safety Report 9186525 (Version 1)
Quarter: 2013Q1

REPORT INFORMATION
  Report Type: Spontaneous
  Country: RU (occurrence: RU)
  Receive Date: 20130325
  Receipt Date: 20130325
  Transmission Date: 20140127
  Serious: Yes (Other)
  Sender: FDA-Public Use
  Company Number: RU-ROCHE-1204217

PATIENT
  Age: 60 Year
  Sex: Female

DRUGS (2)
  1. BONVIVA [Suspect]
     Indication: OSTEOPOROSIS POSTMENOPAUSAL
     Route: 042
     Dates: start: 201204
  2. BONVIVA [Suspect]
     Route: 042
     Dates: start: 201206

REACTIONS (3)
  - Glossodynia [Recovered/Resolved]
  - Laryngeal pain [Recovered/Resolved]
  - Hypoaesthesia oral [Recovered/Resolved]
